FAERS Safety Report 6812878-2 (Version None)
Quarter: 2010Q3

REPORT INFORMATION
  Report Type: 
  Country: None (occurrence: None)
  Receive Date: 20100701
  Receipt Date: 20100621
  Transmission Date: 20110219
  Serious: Yes (Life-Threatening)
  Sender: FDA-Public Use
  Company Number: GXKR2010AT05799

PATIENT
  Age: 56 Year
  Sex: Male

DRUGS (16)
  1. FLUDARABINE (NGX) [Suspect]
     Indication: PROLYMPHOCYTIC LEUKAEMIA
     Dosage: 20 MG/M2/DAY
     Route: 042
     Dates: start: 20091015, end: 20091017
  2. FLUDARABINE (NGX) [Suspect]
     Dosage: 20 MG/M2/DAY
     Route: 042
     Dates: start: 20091113, end: 20091115
  3. FLUDARABINE (NGX) [Suspect]
     Dosage: 20 MG/M2/DAY
     Route: 042
     Dates: start: 20091211, end: 20091213
  4. FLUDARABINE (NGX) [Suspect]
     Dosage: 20 MG/M2/DAY
     Route: 042
     Dates: start: 20100108, end: 20100110
  5. MITOXANTRONE (NGX) [Suspect]
     Indication: PROLYMPHOCYTIC LEUKAEMIA
     Dosage: 6 MG/M2/DAY
     Route: 042
     Dates: start: 20091015
  6. MITOXANTRONE (NGX) [Suspect]
     Dosage: 6 MG/M2/DAY
     Route: 042
     Dates: start: 20091113
  7. MITOXANTRONE (NGX) [Suspect]
     Dosage: 6 MG/M2/DAY
     Route: 042
     Dates: start: 20091211
  8. MITOXANTRONE (NGX) [Suspect]
     Dosage: 6 MG/M2/DAY
     Route: 042
     Dates: start: 20100108
  9. MABCAMPATH [Suspect]
     Indication: PROLYMPHOCYTIC LEUKAEMIA
     Dosage: 30 MG/DAY
     Route: 058
     Dates: start: 20091015, end: 20091017
  10. MABCAMPATH [Suspect]
     Dosage: 30 MG/DAY
     Route: 058
     Dates: start: 20091113, end: 20091115
  11. MABCAMPATH [Suspect]
     Dosage: 30 MG/DAY
     Route: 058
     Dates: start: 20091211, end: 20091213
  12. MABCAMPATH [Suspect]
     Dosage: 30 MG/DAY
     Dates: start: 20100108, end: 20100110
  13. CYCLOPHOSPHAMIDE [Suspect]
     Indication: PROLYMPHOCYTIC LEUKAEMIA
     Dosage: 200 MG/M2/DAY
     Route: 042
     Dates: start: 20091015, end: 20091017
  14. CYCLOPHOSPHAMIDE [Suspect]
     Dosage: 200 MG/M2/DAY
     Dates: start: 20091113, end: 20091115
  15. CYCLOPHOSPHAMIDE [Suspect]
     Dosage: 200 MG/M2/DAY
     Route: 042
     Dates: start: 20091211, end: 20091213
  16. CYCLOPHOSPHAMIDE [Suspect]
     Dosage: 200 MG/M2/DAY
     Route: 042
     Dates: start: 20100108, end: 20100110

REACTIONS (2)
  - CAMPYLOBACTER INFECTION [None]
  - GUILLAIN-BARRE SYNDROME [None]
